FAERS Safety Report 26100452 (Version 1)
Quarter: 2025Q4

REPORT INFORMATION
  Report Type: Spontaneous
  Country: CN (occurrence: CN)
  Receive Date: 20251128
  Receipt Date: 20251128
  Transmission Date: 20260118
  Serious: Yes (Other)
  Sender: JOHNSON AND JOHNSON
  Company Number: CN-JNJFOC-20251166908

PATIENT

DRUGS (1)
  1. TECVAYLI [Suspect]
     Active Substance: TECLISTAMAB-CQYV
     Indication: Plasma cell myeloma
     Route: 065

REACTIONS (5)
  - Hepatic function abnormal [Unknown]
  - Spinal osteoarthritis [Unknown]
  - Resorption bone increased [Unknown]
  - Platelet count decreased [Unknown]
  - Back pain [Unknown]
